FAERS Safety Report 8525139-0 (Version None)
Quarter: 2012Q3

REPORT INFORMATION
  Report Type: 
  Country: None (occurrence: None)
  Receive Date: 20120720
  Receipt Date: 20120710
  Transmission Date: 20120928
  Serious: Yes (Hospitalization)
  Sender: FDA-Public Use
  Company Number: MX-BAXTER-2012BAX010438

PATIENT
  Sex: Male

DRUGS (8)
  1. HEMOFIL M [Suspect]
     Indication: IMMUNOMODULATORY THERAPY
     Dates: start: 20120613
  2. HEMOFIL M [Suspect]
     Dates: start: 20120617
  3. HEMOFIL M [Suspect]
     Dates: start: 20120619
  4. HEMOFIL M [Suspect]
     Dates: start: 20120625
  5. HEMOFIL M [Suspect]
     Dates: start: 20120615
  6. HEMOFIL M [Suspect]
     Dates: start: 20120701
  7. HEMOFIL M [Suspect]
     Dates: start: 20120621
  8. CEFPODOXIME PROXETIL [Concomitant]
     Dates: start: 20120616, end: 20120622

REACTIONS (2)
  - PYREXIA [None]
  - KLEBSIELLA INFECTION [None]
